FAERS Safety Report 9186303 (Version 1)
Quarter: 2013Q1

REPORT INFORMATION
  Report Type: Spontaneous
  Country: IT (occurrence: IT)
  Receive Date: 20130325
  Receipt Date: 20130325
  Transmission Date: 20140127
  Serious: Yes (Hospitalization)
  Sender: FDA-Public Use
  Company Number: IT-MYLANLABS-2013S1005792

PATIENT
  Age: 81 Year
  Sex: Male

DRUGS (8)
  1. METFORMIN HYDROCHLORIDE [Suspect]
     Indication: DIABETES MELLITUS
     Route: 048
     Dates: start: 20100101, end: 20121227
  2. ASCRIPTIN [Concomitant]
     Indication: PRODUCT USED FOR UNKNOWN INDICATION
  3. CORDARONE [Concomitant]
     Indication: HYPERTENSION
  4. NORVASC [Concomitant]
     Indication: HYPERTENSION
  5. OLPREZIDE [Concomitant]
     Indication: HYPERTENSION
  6. TOTALIP [Concomitant]
     Indication: PRODUCT USED FOR UNKNOWN INDICATION
  7. OMNIC [Concomitant]
     Indication: PRODUCT USED FOR UNKNOWN INDICATION
  8. LANSOPRAZOLE [Concomitant]
     Indication: PRODUCT USED FOR UNKNOWN INDICATION

REACTIONS (1)
  - Renal failure acute [Recovered/Resolved]
